FAERS Safety Report 13063494 (Version 1)
Quarter: 2016Q4

REPORT INFORMATION
  Report Type: Spontaneous
  Country: US (occurrence: US)
  Receive Date: 20161227
  Receipt Date: 20161227
  Transmission Date: 20170207
  Serious: Yes (Life-Threatening, Hospitalization, Other)
  Sender: FDA-Public Use
  Company Number: US-AUROBINDO-AUR-APL-2016-15632

PATIENT
  Age: 56 Year
  Sex: Male
  Weight: 79.5 kg

DRUGS (5)
  1. VANCOMYCIN [Suspect]
     Active Substance: VANCOMYCIN
     Indication: VASOGENIC CEREBRAL OEDEMA
     Dosage: UNK
     Route: 042
  2. DEXAMETHASONE. [Concomitant]
     Active Substance: DEXAMETHASONE
     Dosage: 2 MG, TWO TIMES A DAY
     Route: 048
  3. DEXAMETHASONE. [Concomitant]
     Active Substance: DEXAMETHASONE
     Indication: VASOGENIC CEREBRAL OEDEMA
     Dosage: 4 MG, TWO TIMES A DAY
     Route: 048
  4. DEXAMETHASONE. [Concomitant]
     Active Substance: DEXAMETHASONE
     Dosage: 2 MG, ONCE A DAY
     Route: 048
  5. DEXAMETHASONE. [Concomitant]
     Active Substance: DEXAMETHASONE
     Dosage: 1 MG, ONCE A DAY
     Route: 048

REACTIONS (8)
  - Tachycardia [Recovered/Resolved]
  - Hypotension [Recovered/Resolved]
  - Acute generalised exanthematous pustulosis [Recovered/Resolved]
  - Tachypnoea [Recovered/Resolved]
  - Mental impairment [Recovered/Resolved]
  - Dyspnoea [Recovered/Resolved]
  - Urine output decreased [Recovered/Resolved]
  - Liver function test increased [Recovered/Resolved]
